FAERS Safety Report 16422264 (Version 1)
Quarter: 2019Q2

REPORT INFORMATION
  Report Type: Report from Study
  Country: AR (occurrence: AR)
  Receive Date: 20190612
  Receipt Date: 20190612
  Transmission Date: 20190711
  Serious: Yes (Hospitalization)
  Sender: FDA-Public Use
  Company Number: PHHY2019AR135014

PATIENT
  Age: 3 Year
  Sex: Female

DRUGS (10)
  1. OMNITROPE [Suspect]
     Active Substance: SOMATROPIN
     Indication: SEPTO-OPTIC DYSPLASIA
     Dosage: 0.3 MG, QN
     Route: 065
     Dates: start: 201602
  2. LEVOTHYROXINE. [Concomitant]
     Active Substance: LEVOTHYROXINE
     Indication: HYPOGLYCAEMIA
  3. HYDROCORTISONE. [Concomitant]
     Active Substance: HYDROCORTISONE
     Indication: GROWTH HORMONE DEFICIENCY
  4. LEVOTHYROXINE. [Concomitant]
     Active Substance: LEVOTHYROXINE
     Indication: CORTISOL DEFICIENCY
  5. HYDROCORTISONE. [Concomitant]
     Active Substance: HYDROCORTISONE
     Indication: CORTISOL DEFICIENCY
  6. HYDROCORTISONE. [Concomitant]
     Active Substance: HYDROCORTISONE
     Indication: THYROID HORMONES DECREASED
     Dosage: 2.5 MG, QD
     Route: 048
  7. LEVOTHYROXINE. [Concomitant]
     Active Substance: LEVOTHYROXINE
     Indication: THYROID HORMONES DECREASED
     Dosage: 25 UG, QD
     Route: 065
     Dates: start: 201602
  8. OMNITROPE [Suspect]
     Active Substance: SOMATROPIN
     Indication: CORTISOL DEFICIENCY
  9. OMNITROPE [Suspect]
     Active Substance: SOMATROPIN
     Indication: GROWTH HORMONE DEFICIENCY
  10. LEVOTHYROXINE. [Concomitant]
     Active Substance: LEVOTHYROXINE
     Indication: GROWTH HORMONE DEFICIENCY

REACTIONS (4)
  - Pyrexia [Unknown]
  - Oral disorder [Unknown]
  - Vomiting [Unknown]
  - Apnoea [Unknown]

NARRATIVE: CASE EVENT DATE: 20190415
